FAERS Safety Report 4623898-0 (Version None)
Quarter: 2005Q1

REPORT INFORMATION
  Report Type: 
  Country: None (occurrence: None)
  Receive Date: 20050331
  Receipt Date: 20050119
  Transmission Date: 20050727
  Serious: Yes (Hospitalization)
  Sender: FDA-Public Use
  Company Number: CA-ROCHE-392978

PATIENT
  Age: 78 Year
  Sex: Male
  Weight: 74.6 kg

DRUGS (5)
  1. CAPECITABINE [Suspect]
     Dosage: GIVEN ON DAYS 1 - 15 OF A 3 WEEK CYCLE.
     Route: 048
     Dates: start: 20050106, end: 20050117
  2. OXALIPLATIN [Suspect]
     Route: 042
     Dates: start: 20050106, end: 20050117
  3. RYTHMOL [Concomitant]
     Dates: start: 19990615
  4. METOPROLOL TARTRATE [Concomitant]
     Dates: start: 19990615
  5. COUMADIN [Concomitant]
     Dates: start: 20000615

REACTIONS (1)
  - DIARRHOEA [None]
